FAERS Safety Report 10746658 (Version 8)
Quarter: 2015Q1

REPORT INFORMATION
  Report Type: Report from Study
  Country: NL (occurrence: NL)
  Receive Date: 20150128
  Receipt Date: 20150330
  Transmission Date: 20150721
  Serious: Yes (Life-Threatening, Hospitalization)
  Sender: FDA-Public Use
  Company Number: PHHO2015NL001339

PATIENT
  Age: 14 Year
  Sex: Male
  Weight: 69.2 kg

DRUGS (5)
  1. PARACETAMOL [Suspect]
     Active Substance: ACETAMINOPHEN
     Indication: PRODUCT USED FOR UNKNOWN INDICATION
     Dosage: UNK
     Route: 065
  2. MACROGOL [Concomitant]
     Active Substance: POLYETHYLENE GLYCOLS
     Indication: CONSTIPATION
     Dosage: 20 G, QD (START DAY C1D14)
     Route: 048
     Dates: start: 20141112, end: 20141114
  3. LDK378 [Suspect]
     Active Substance: CERITINIB
     Indication: INFLAMMATORY MYOFIBROBLASTIC TUMOUR
     Dosage: 800 MG, QD
     Route: 048
     Dates: start: 20141030, end: 20150120
  4. DRIDASE [Concomitant]
     Indication: NOCTURIA
     Dosage: 5 MG, TID (START DAY C1D2)
     Route: 048
     Dates: start: 20141031
  5. AMOXICILLIN TRIHYDRATE [Concomitant]
     Active Substance: AMOXICILLIN
     Indication: URINARY TRACT INFECTION
     Dosage: 625 (500/125) MG, TID (START DAY C1D7)
     Route: 048
     Dates: start: 20141105

REACTIONS (2)
  - Acute hepatic failure [Recovered/Resolved]
  - Acute kidney injury [Recovered/Resolved]

NARRATIVE: CASE EVENT DATE: 20150122
